FAERS Safety Report 4950082-3 (Version None)
Quarter: 2006Q1

REPORT INFORMATION
  Report Type: 
  Country: None (occurrence: None)
  Receive Date: 20060320
  Receipt Date: 20060320
  Transmission Date: 20060701
  Serious: Yes (Other)
  Sender: FDA-Public Use
  Company Number: None

PATIENT
  Age: 30 Year
  Sex: Female
  Weight: 83.9154 kg

DRUGS (1)
  1. TERBUTALINE SULFATE [Suspect]
     Indication: PREMATURE LABOUR
     Dosage: 0.25MG 2 DOSES SQ   ; 2 DOSES - 1 HR 20 MINS APA
     Route: 058

REACTIONS (7)
  - DIARRHOEA [None]
  - DRUG EXPOSURE DURING PREGNANCY [None]
  - ERYTHEMA INFECTIOSUM [None]
  - FOETAL ARRHYTHMIA [None]
  - HYPOTENSION [None]
  - NAUSEA [None]
  - VOMITING [None]
